FAERS Safety Report 11314265 (Version 1)
Quarter: 2015Q3

REPORT INFORMATION
  Report Type: Spontaneous
  Country: DE (occurrence: DE)
  Receive Date: 20150727
  Receipt Date: 20150727
  Transmission Date: 20151125
  Serious: Yes (Hospitalization)
  Sender: FDA-Public Use
  Company Number: DE-BAYER-2015-387360

PATIENT
  Age: 29 Year
  Sex: Female

DRUGS (1)
  1. BETAFERON [Suspect]
     Active Substance: INTERFERON BETA-1B
     Indication: MULTIPLE SCLEROSIS
     Dosage: 250 ?G, QOD
     Dates: start: 20141024

REACTIONS (7)
  - Fatigue [None]
  - Loss of consciousness [None]
  - General physical health deterioration [None]
  - Feeling abnormal [None]
  - Drug hypersensitivity [None]
  - Generalised tonic-clonic seizure [Recovering/Resolving]
  - Dizziness [None]

NARRATIVE: CASE EVENT DATE: 20150714
